FAERS Safety Report 23414097 (Version 17)
Quarter: 2025Q4

REPORT INFORMATION
  Report Type: Spontaneous
  Country: US (occurrence: US)
  Receive Date: 20240117
  Receipt Date: 20251002
  Transmission Date: 20260117
  Serious: Yes (Other)
  Sender: BRISTOL-MYERS SQUIBB COMPANY
  Company Number: US-BRISTOL-MYERS SQUIBB COMPANY-2023-169795

PATIENT
  Age: 72 Year
  Sex: Female
  Weight: 48.99 kg

DRUGS (9)
  1. REVLIMID [Suspect]
     Active Substance: LENALIDOMIDE
     Indication: Plasma cell myeloma
     Dosage: FREQUENCY: TAKE 1 CAPSULE ON DAYS 1-14 OF EACH 21 DAY CYCLE. TAKE WHOLE W/WATER W OR W/OUT FOOD AT THE SAME TIME EACH DAY.
     Dates: start: 20231212
  2. REVLIMID [Suspect]
     Active Substance: LENALIDOMIDE
     Dosage: FREQUENCY: TAKE 1 CAPSULE ON DAYS 1-14 OF EACH 21 DAY CYCLE. TAKE WHOLE W/WATER W OR W/OUT FOOD AT THE SAME TIME EACH DAY.
     Dates: start: 20240117
  3. REVLIMID [Suspect]
     Active Substance: LENALIDOMIDE
     Dosage: FREQUENCY: TAKE 1 CAPSULE ON DAYS 1-14 OF EACH 21 DAY CYCLE. TAKE WHOLE W/WATER W OR W/OUT FOOD AT THE SAME TIME EACH DAY.
     Dates: start: 2024
  4. REVLIMID [Suspect]
     Active Substance: LENALIDOMIDE
     Dosage: TAKE 1 CAPSULE BY MOUTH AT APPROXIMATELY THE SAME TIME DAILY
  5. REVLIMID [Suspect]
     Active Substance: LENALIDOMIDE
     Dosage: TAKE 1 CAPSULE BY MOUTH DAILY ON DAYS 1-14 OF EACH 21 DAY CYCLE. TAKE WHOLE W/WATER, W OR W/OUT FOOD AT THE SAME TIM
  6. REVLIMID [Suspect]
     Active Substance: LENALIDOMIDE
  7. REVLIMID [Suspect]
     Active Substance: LENALIDOMIDE
     Dosage: TAKE 1 CAPSULE BY MOUTH AT APPROXIMATELY THE SAME TIME DAILY
  8. REVLIMID [Suspect]
     Active Substance: LENALIDOMIDE
  9. CIPRO [Concomitant]
     Active Substance: CIPROFLOXACIN HYDROCHLORIDE
     Indication: Gangrene

REACTIONS (22)
  - Off label use [Unknown]
  - Localised infection [Unknown]
  - Urticaria [Recovered/Resolved]
  - Appetite disorder [Not Recovered/Not Resolved]
  - Weight decreased [Recovering/Resolving]
  - Decreased appetite [Not Recovered/Not Resolved]
  - Dysgeusia [Unknown]
  - Ageusia [Unknown]
  - Malaise [Recovering/Resolving]
  - Fatigue [Recovering/Resolving]
  - Vertigo [Recovered/Resolved]
  - Epigastric discomfort [Unknown]
  - Constipation [Recovering/Resolving]
  - Product dose omission issue [Unknown]
  - Muscle tightness [Not Recovered/Not Resolved]
  - Musculoskeletal stiffness [Recovered/Resolved]
  - Product use issue [Unknown]
  - Nasopharyngitis [Not Recovered/Not Resolved]
  - Cough [Not Recovered/Not Resolved]
  - Hunger [Not Recovered/Not Resolved]
  - Nausea [Not Recovered/Not Resolved]
  - Pain in jaw [Unknown]
